FAERS Safety Report 5481303-9 (Version None)
Quarter: 2007Q4

REPORT INFORMATION
  Report Type: 
  Country: None (occurrence: None)
  Receive Date: 20071005
  Receipt Date: 20071005
  Transmission Date: 20080405
  Serious: No
  Sender: FDA-Public Use
  Company Number: None

PATIENT
  Age: 47 Year
  Sex: Male

DRUGS (2)
  1. MORPHINE [Suspect]
     Indication: BACK PAIN
     Dosage: IV
     Route: 042
  2. METHADONE HCL [Suspect]
     Dosage: PO
     Route: 048

REACTIONS (3)
  - AGGRESSION [None]
  - AGITATION [None]
  - ANAPHYLACTIC REACTION [None]
